FAERS Safety Report 5090616-4 (Version None)
Quarter: 2006Q3

REPORT INFORMATION
  Report Type: 
  Country: None (occurrence: None)
  Receive Date: 20060828
  Receipt Date: 20060817
  Transmission Date: 20061208
  Serious: Yes (Hospitalization)
  Sender: FDA-Public Use
  Company Number: FR-AVENTIS-200614384EU

PATIENT
  Age: 84 Year
  Sex: Male

DRUGS (5)
  1. FLUDEX [Suspect]
     Indication: HYPERTENSION
     Route: 048
     Dates: start: 20060317, end: 20060407
  2. ATACAND [Concomitant]
     Dates: end: 20060317
  3. ZOXON [Concomitant]
  4. ALLOPURINOL [Concomitant]
  5. IMOVANE [Concomitant]

REACTIONS (4)
  - DYSPNOEA [None]
  - PHLEBITIS [None]
  - PULMONARY EMBOLISM [None]
  - TACHYCARDIA [None]
